FAERS Safety Report 9508231 (Version 1)
Quarter: 2013Q3

REPORT INFORMATION
  Report Type: Spontaneous
  Country: US (occurrence: US)
  Receive Date: 20130909
  Receipt Date: 20130909
  Transmission Date: 20140515
  Serious: No
  Sender: FDA-Public Use
  Company Number: US-PFIZER INC-2013253994

PATIENT
  Age: 59 Year
  Sex: Female
  Weight: 58.97 kg

DRUGS (1)
  1. MOTRIN IB [Suspect]
     Indication: PAIN
     Dosage: 200MG CAPLET, ONE AND A HALF CAPLET (300MG TOTAL), UNK
     Route: 048
     Dates: start: 20130612, end: 20130612

REACTIONS (1)
  - Dyspnoea [Recovered/Resolved]
